FAERS Safety Report 6110703-9 (Version None)
Quarter: 2009Q1

REPORT INFORMATION
  Report Type: 
  Country: None (occurrence: None)
  Receive Date: 20090309
  Receipt Date: 20090303
  Transmission Date: 20090719
  Serious: Yes (Life-Threatening)
  Sender: FDA-Public Use
  Company Number: ADE20099-0464

PATIENT
  Age: 81 Year
  Sex: Male

DRUGS (1)
  1. CITALOPRAM HYDROBROMIDE [Suspect]

REACTIONS (1)
  - TORSADE DE POINTES [None]
